FAERS Safety Report 7009261-6 (Version None)
Quarter: 2010Q3

REPORT INFORMATION
  Report Type: 
  Country: None (occurrence: None)
  Receive Date: 20100923
  Receipt Date: 20100921
  Transmission Date: 20110219
  Serious: Yes (Death)
  Sender: FDA-Public Use
  Company Number: US-BRISTOL-MYERS SQUIBB COMPANY-15296114

PATIENT
  Age: 78 Year
  Sex: Female

DRUGS (3)
  1. COUMADIN [Suspect]
     Indication: CARDIAC VALVE DISEASE
  2. PRAVACHOL [Concomitant]
  3. ARICEPT [Concomitant]

REACTIONS (7)
  - ARTHROPATHY [None]
  - BACK PAIN [None]
  - INTERSTITIAL LUNG DISEASE [None]
  - MUSCLE SPASMS [None]
  - OEDEMA PERIPHERAL [None]
  - PAIN IN EXTREMITY [None]
  - SINUS DISORDER [None]
